FAERS Safety Report 6987080-4 (Version None)
Quarter: 2010Q3

REPORT INFORMATION
  Report Type: 
  Country: None (occurrence: None)
  Receive Date: 20100916
  Receipt Date: 20100701
  Transmission Date: 20110219
  Serious: Yes (Other)
  Sender: FDA-Public Use
  Company Number: US-BAYER-201018329NA

PATIENT
  Age: 22 Year
  Sex: Female
  Weight: 64 kg

DRUGS (13)
  1. YAZ [Suspect]
     Indication: ORAL CONTRACEPTION
     Route: 048
     Dates: start: 20060101, end: 20080101
  2. YASMIN [Suspect]
     Indication: ORAL CONTRACEPTION
     Route: 048
     Dates: start: 20070701, end: 20080901
  3. OCELLA [Suspect]
     Indication: ORAL CONTRACEPTION
     Route: 048
     Dates: start: 20081101, end: 20090801
  4. ADVAIR DISKUS 100/50 [Concomitant]
     Route: 055
  5. UNKNOWN MEDICATION [Concomitant]
     Indication: MIGRAINE
  6. IBUPROFEN [Concomitant]
  7. EXCEDRIN (MIGRAINE) [Concomitant]
  8. TYLENOL [Concomitant]
  9. XOPENEX [Concomitant]
     Dosage: 200 PUFFS
     Route: 055
     Dates: start: 20060901, end: 20071201
  10. CHERATUSSIN AC [Concomitant]
     Dates: start: 20060801
  11. PSEUDOVENT [Concomitant]
     Route: 048
     Dates: start: 20060801
  12. ERYTROMYCIN [Concomitant]
     Route: 048
     Dates: start: 20060801
  13. LORATADINE [Concomitant]
     Route: 048
     Dates: start: 20060801

REACTIONS (3)
  - ABDOMINAL PAIN [None]
  - CHOLECYSTITIS CHRONIC [None]
  - CHOLELITHIASIS [None]
